FAERS Safety Report 16025795 (Version 1)
Quarter: 2019Q1

REPORT INFORMATION
  Report Type: Report from Study
  Country: ES (occurrence: ES)
  Receive Date: 20190302
  Receipt Date: 20190302
  Transmission Date: 20190418
  Serious: Yes (Life-Threatening, Other)
  Sender: FDA-Public Use
  Company Number: ES-ACCORD-072680

PATIENT
  Age: 58 Year
  Sex: Male

DRUGS (20)
  1. FUROSEMIDE. [Suspect]
     Active Substance: FUROSEMIDE
     Indication: PRODUCT USED FOR UNKNOWN INDICATION
     Route: 048
     Dates: start: 20180724, end: 20180816
  2. VANCOMYCIN SALA [Interacting]
     Active Substance: VANCOMYCIN
     Indication: PANCREATITIS ACUTE
     Dosage: STRENGTH  1 G?1G/12H
     Route: 042
     Dates: start: 20180731, end: 20180816
  3. ENOXAPARIN [Concomitant]
     Active Substance: ENOXAPARIN
     Route: 058
  4. PARACETAMOL [Concomitant]
     Active Substance: ACETAMINOPHEN
     Route: 042
     Dates: start: 20180722, end: 20180725
  5. NOLOTIL [Concomitant]
     Route: 042
  6. PRIMPERAN [Concomitant]
     Active Substance: METOCLOPRAMIDE HYDROCHLORIDE
     Route: 042
  7. LORMETAZEPAM [Concomitant]
     Active Substance: LORMETAZEPAM
     Route: 048
  8. IMIPENEM AND CILASTATIN [Interacting]
     Active Substance: CILASTATIN SODIUM\IMIPENEM
     Indication: PANCREATITIS ACUTE
     Dosage: STRENGTH 500 / 500MG VIAL
     Route: 042
     Dates: start: 20180721, end: 20180823
  9. AMOXICILLIN/CLAVULANIC ACID [Concomitant]
     Dosage: STRENGTH  1G
     Route: 042
     Dates: start: 20180719, end: 20180719
  10. CORENITEC [Interacting]
     Active Substance: ENALAPRIL\HYDROCHLOROTHIAZIDE
     Indication: HYPERTENSION
     Dosage: FOR BREAKFAST
     Route: 048
     Dates: start: 20180721, end: 20180816
  11. OMEPRAZOLE. [Concomitant]
     Active Substance: OMEPRAZOLE
  12. ADOLONTA [Concomitant]
     Active Substance: TRAMADOL HYDROCHLORIDE
     Route: 042
  13. PIPERACILLIN/TAZOBACTAM [Concomitant]
     Indication: PANCREATITIS ACUTE
     Dosage: STRENGTH 4G / 500MG VIAL?4G/6H
     Route: 042
     Dates: start: 20180721, end: 20180721
  14. KONAKION [Concomitant]
     Active Substance: PHYTONADIONE
     Route: 042
  15. PARACETAMOL [Suspect]
     Active Substance: ACETAMINOPHEN
     Indication: PYREXIA
     Dosage: 1G/8H
     Route: 042
     Dates: start: 20180722, end: 20180726
  16. NICARDIPINE [Concomitant]
     Active Substance: NICARDIPINE
     Indication: HYPERTENSION
     Dosage: FOR BREAKFAST
     Route: 048
     Dates: start: 201807, end: 20180816
  17. FLUCONAZOLE. [Concomitant]
     Active Substance: FLUCONAZOLE
     Route: 042
     Dates: start: 20180813
  18. GASTROGRAFIN [Interacting]
     Active Substance: DIATRIZOATE MEGLUMINE\DIATRIZOATE SODIUM
     Indication: PRODUCT USED FOR UNKNOWN INDICATION
     Route: 048
  19. FLUOXETINE [Concomitant]
     Active Substance: FLUOXETINE HYDROCHLORIDE
     Route: 048
  20. INSULIN [Concomitant]
     Active Substance: INSULIN NOS
     Route: 042

REACTIONS (4)
  - Urticaria [Recovered/Resolved]
  - Nephropathy toxic [Unknown]
  - Drug interaction [Unknown]
  - Rash [Recovered/Resolved]

NARRATIVE: CASE EVENT DATE: 20180725
